FAERS Safety Report 8887075 (Version 2)
Quarter: 2012Q4

REPORT INFORMATION
  Report Type: 
  Country: IT (occurrence: IT)
  Receive Date: 20121101
  Receipt Date: 20121105
  Transmission Date: 20130627
  Serious: Yes (Hospitalization)
  Sender: FDA-Public Use
  Company Number: PHHY2012IT097026

PATIENT
  Age: 38 Year
  Sex: Male

DRUGS (2)
  1. ENOXAPARIN [Suspect]
     Indication: PROPHYLAXIS
     Dosage: 4000 IU
  2. HEPARIN [Suspect]
     Indication: PROPHYLAXIS
     Dosage: 25000 IU, UNK
     Route: 042

REACTIONS (10)
  - Carotid artery occlusion [Not Recovered/Not Resolved]
  - Diplopia [Recovered/Resolved]
  - Visual acuity reduced [Recovering/Resolving]
  - Amaurosis fugax [Recovering/Resolving]
  - Ischaemic stroke [Recovering/Resolving]
  - Thalamic infarction [Recovering/Resolving]
  - Central nervous system lesion [Recovering/Resolving]
  - Heparin-induced thrombocytopenia [Recovered/Resolved]
  - Pulmonary embolism [Recovering/Resolving]
  - Dyspnoea [Recovering/Resolving]
